FAERS Safety Report 5728055-2 (Version None)
Quarter: 2008Q2

REPORT INFORMATION
  Report Type: 
  Country: None (occurrence: None)
  Receive Date: 20080430
  Receipt Date: 20080415
  Transmission Date: 20081010
  Serious: Yes (Life-Threatening, Hospitalization, Other)
  Sender: FDA-Public Use
  Company Number: 2008S1006372

PATIENT
  Age: 43 Year
  Sex: Female

DRUGS (7)
  1. LAMICTAL [Suspect]
     Indication: CONVULSION
     Dosage: 300 MG; TWICE A DAY; ORAL
     Route: 048
     Dates: start: 20060101
  2. ORAL CONTRACEPTIVE NOS [Suspect]
     Indication: HORMONE THERAPY
     Dates: end: 20071003
  3. SEASONALE [Suspect]
     Indication: HORMONE THERAPY
     Dates: end: 20071003
  4. KEPPRA [Suspect]
     Indication: COMPLEX PARTIAL SEIZURES
     Dates: end: 20071003
  5. PHENYTOIN SODIUM [Suspect]
     Indication: CONVULSION
     Dosage: ORAL
     Route: 048
  6. ZONISAMIDE [Suspect]
     Indication: CONVULSION
     Dosage: 200 MG, DAILY; ORAL
     Route: 048
  7. FUROSEMIDE [Concomitant]

REACTIONS (11)
  - ANTICONVULSANT DRUG LEVEL DECREASED [None]
  - BUNDLE BRANCH BLOCK RIGHT [None]
  - COMPLEX PARTIAL SEIZURES [None]
  - CONDITION AGGRAVATED [None]
  - CONVULSIVE THRESHOLD LOWERED [None]
  - DIZZINESS [None]
  - DRUG INTERACTION [None]
  - ELECTROCARDIOGRAM ST SEGMENT ABNORMAL [None]
  - GRAND MAL CONVULSION [None]
  - HEADACHE [None]
  - STATUS EPILEPTICUS [None]
